FAERS Safety Report 9742680 (Version 1)
Quarter: 2013Q4

REPORT INFORMATION
  Report Type: Spontaneous
  Country: US (occurrence: US)
  Receive Date: 20131210
  Receipt Date: 20131210
  Transmission Date: 20140711
  Serious: No
  Sender: FDA-Public Use
  Company Number: US-GILEAD-2009-0025370

PATIENT
  Sex: Male
  Weight: 56.25 kg

DRUGS (9)
  1. LETAIRIS [Suspect]
     Indication: PULMONARY ARTERIAL HYPERTENSION
     Route: 048
     Dates: start: 20091102
  2. ALBUTEROL [Concomitant]
  3. VFEND [Concomitant]
  4. NASACORT [Concomitant]
  5. LUNESTA [Concomitant]
  6. ALLEGRA [Concomitant]
  7. ADVAIR [Concomitant]
  8. VERAMYST [Concomitant]
  9. CENTRUM [Concomitant]

REACTIONS (3)
  - Dizziness [Unknown]
  - Dizziness [Unknown]
  - Hot flush [Unknown]
